FAERS Safety Report 5598082-7 (Version None)
Quarter: 2008Q1

REPORT INFORMATION
  Report Type: 
  Country: None (occurrence: None)
  Receive Date: 20080122
  Receipt Date: 20080111
  Transmission Date: 20080703
  Serious: Yes (Disabling)
  Sender: FDA-Public Use
  Company Number: NO-JNJFOC-20080103048

PATIENT
  Sex: Female

DRUGS (6)
  1. REMICADE [Suspect]
     Route: 042
  2. REMICADE [Suspect]
     Indication: PSORIASIS
     Route: 042
  3. ZOMIG [Concomitant]
     Indication: MIGRAINE
  4. METHOTREXATE [Concomitant]
     Indication: PSORIASIS
  5. FOLIC ACID [Concomitant]
     Indication: FOLATE DEFICIENCY
  6. DIANE [Concomitant]
     Indication: CONTRACEPTION
     Route: 048

REACTIONS (1)
  - PSORIATIC ARTHROPATHY [None]
